FAERS Safety Report 12409734 (Version 2)
Quarter: 2016Q2

REPORT INFORMATION
  Report Type: Spontaneous
  Country: BR (occurrence: US)
  Receive Date: 20160526
  Receipt Date: 20160609
  Transmission Date: 20160815
  Serious: Yes (Hospitalization)
  Sender: FDA-Public Use
  Company Number: BR-JNJFOC-20160515867

PATIENT
  Age: 28 Year
  Sex: Female

DRUGS (2)
  1. IMOSEC [Suspect]
     Active Substance: LOPERAMIDE
     Indication: PRODUCT USED FOR UNKNOWN INDICATION
     Route: 065
  2. IMOSEC [Suspect]
     Active Substance: LOPERAMIDE
     Indication: PRODUCT USED FOR UNKNOWN INDICATION
     Dosage: 400-600 MG
     Route: 065

REACTIONS (5)
  - Heart rate irregular [Recovered/Resolved]
  - Syncope [Recovering/Resolving]
  - Intentional overdose [Unknown]
  - Drug abuse [Unknown]
  - Conduction disorder [Unknown]
